FAERS Safety Report 23470428 (Version 1)
Quarter: 2024Q1

REPORT INFORMATION
  Report Type: Spontaneous
  Country: US (occurrence: None)
  Receive Date: 20240201
  Receipt Date: 20240201
  Transmission Date: 20240409
  Serious: Yes (Disabling)
  Sender: FDA-Public Use
  Company Number: None

PATIENT
  Age: 59 Year
  Sex: Male
  Weight: 73.2 kg

DRUGS (1)
  1. NOREPINEPHRINE [Suspect]
     Active Substance: NOREPINEPHRINE
     Indication: Septic shock
     Dosage: FREQUENCY : AS NEEDED;?
     Route: 041
     Dates: start: 20231208, end: 20231213

REACTIONS (10)
  - Dry gangrene [None]
  - Leg amputation [None]
  - Finger amputation [None]
  - Livedo reticularis [None]
  - Renal failure [None]
  - Livedo reticularis [None]
  - Sepsis [None]
  - Peripheral ischaemia [None]
  - Shock [None]
  - Gangrene [None]

NARRATIVE: CASE EVENT DATE: 20240201
